FAERS Safety Report 14373299 (Version 1)
Quarter: 2018Q1

REPORT INFORMATION
  Report Type: Spontaneous
  Country: US (occurrence: US)
  Receive Date: 20180109
  Receipt Date: 20180109
  Transmission Date: 20180509
  Serious: Yes (Hospitalization)
  Sender: FDA-Public Use
  Company Number: None

PATIENT
  Age: 74 Year
  Sex: Male
  Weight: 69.4 kg

DRUGS (1)
  1. WARFARIN [Suspect]
     Active Substance: WARFARIN
     Indication: ATRIAL FIBRILLATION
     Dates: start: 20040623, end: 20170501

REACTIONS (5)
  - Melaena [None]
  - Upper gastrointestinal haemorrhage [None]
  - Anaemia [None]
  - Hypotension [None]
  - Arteriovenous malformation [None]

NARRATIVE: CASE EVENT DATE: 20170425
